FAERS Safety Report 9063689 (Version 2)
Quarter: 2013Q1

REPORT INFORMATION
  Report Type: Spontaneous
  Country: US (occurrence: US)
  Receive Date: 20130213
  Receipt Date: 20130305
  Transmission Date: 20140127
  Serious: Yes (Hospitalization, Other)
  Sender: FDA-Public Use
  Company Number: US-PFIZER INC-2013053164

PATIENT
  Age: 79 Year
  Sex: Female
  Weight: 81.63 kg

DRUGS (1)
  1. REVATIO [Suspect]
     Dosage: 20 MG, 3X/DAY

REACTIONS (1)
  - Pneumonia [Recovering/Resolving]
